FAERS Safety Report 9062749 (Version 1)
Quarter: 2013Q1

REPORT INFORMATION
  Report Type: Spontaneous
  Country: US (occurrence: US)
  Receive Date: 20130128
  Receipt Date: 20130128
  Transmission Date: 20140127
  Serious: Yes (Other)
  Sender: FDA-Public Use
  Company Number: US-BAYER-2013-010698

PATIENT
  Age: 43 Year
  Sex: Female
  Weight: 97.5 kg

DRUGS (10)
  1. YAZ [Suspect]
     Indication: CONTRACEPTION
  2. YAZ [Suspect]
     Indication: MENORRHAGIA
  3. YAZ [Suspect]
     Indication: DYSMENORRHOEA
  4. ZYRTEC [Concomitant]
  5. CLARITIN [Concomitant]
     Dosage: QD, AS NEEDED
  6. NASONEX [Concomitant]
     Dosage: 50 ?G, 2 SPRAYS EACH NOSTRIL
  7. VALTREX [Concomitant]
     Dosage: 500 MG, UNK
  8. FLONASE [Concomitant]
     Dosage: 50 ?G, 2 SPRAYS EACH NOSTRIL DAILY
  9. CERON-DM / SILDEC PE-DM SYRUP [Concomitant]
     Dosage: 5 ML, EVERY 6 HOURS AS NEEDED
  10. AZITHROMYCIN [Concomitant]
     Dosage: 250 MG, TWO TABLETS TODAY, THEN ONE TABLET DAILY FOR 5 DAYS

REACTIONS (1)
  - Deep vein thrombosis [None]
